FAERS Safety Report 12355586 (Version 1)
Quarter: 2016Q2

REPORT INFORMATION
  Report Type: Spontaneous
  Country: FR (occurrence: FR)
  Receive Date: 20160511
  Receipt Date: 20160511
  Transmission Date: 20160815
  Serious: Yes (Other)
  Sender: FDA-Public Use
  Company Number: FR-SA-2016SA089498

PATIENT
  Age: 37 Year
  Sex: Female

DRUGS (10)
  1. FOSRENOL [Concomitant]
     Active Substance: LANTHANUM CARBONATE
     Dosage: 500MG 3/DAY
  2. TRAMADOL. [Concomitant]
     Active Substance: TRAMADOL
  3. CALCIDIA [Concomitant]
     Active Substance: CALCIUM POLYCARBOPHIL
     Dosage: 1.5G 2/DAY
  4. SODIUM BICARBONATE. [Concomitant]
     Active Substance: SODIUM BICARBONATE
     Dosage: 1G 1/DAY
  5. LOPERAMIDE [Concomitant]
     Active Substance: LOPERAMIDE
     Dosage: 2MG
  6. UVEDOSE [Concomitant]
     Active Substance: CHOLECALCIFEROL
  7. PLAVIX [Suspect]
     Active Substance: CLOPIDOGREL BISULFATE
     Indication: CARDIOVASCULAR EVENT PROPHYLAXIS
     Route: 048
  8. LEXOMIL [Concomitant]
     Active Substance: BROMAZEPAM
     Dosage: 1/DAY
  9. LEVEMIR [Concomitant]
     Active Substance: INSULIN DETEMIR
     Dosage: 40 IU IN EVENING
  10. ASCOFER [Concomitant]
     Active Substance: FERROUS GLUCONATE
     Dosage: 33 1/DAY

REACTIONS (2)
  - Arteriovenous fistula site haemorrhage [Recovered/Resolved]
  - Arteriovenous fistula site haemorrhage [Recovered/Resolved]

NARRATIVE: CASE EVENT DATE: 20150909
